FAERS Safety Report 9090575 (Version 1)
Quarter: 2013Q1

REPORT INFORMATION
  Report Type: Report from Study
  Country: US (occurrence: US)
  Receive Date: 20130201
  Receipt Date: 20130201
  Transmission Date: 20140127
  Serious: No
  Sender: FDA-Public Use
  Company Number: US-ABBOTT-12P-163-1018430-00

PATIENT
  Age: 41 Year
  Sex: Female

DRUGS (6)
  1. HUMIRA [Suspect]
     Indication: CROHN^S DISEASE
     Dates: start: 20121121
  2. 6-MP [Concomitant]
     Indication: PRODUCT USED FOR UNKNOWN INDICATION
     Dosage: 50 MG DAILY
  3. VITAMIN B-6 [Concomitant]
     Indication: CROHN^S DISEASE
     Dosage: DAILY
  4. ALIGN PROBIOTICS [Concomitant]
     Indication: CROHN^S DISEASE
     Dosage: DAILY
  5. PREVACID [Concomitant]
     Indication: GASTROOESOPHAGEAL REFLUX DISEASE
     Dosage: 1 TAB AT NIGHT (OVER THE COUNTER)
  6. VITAMIN D [Concomitant]
     Indication: VITAMIN D DECREASED

REACTIONS (3)
  - Pain [Recovering/Resolving]
  - Wrong technique in drug usage process [Unknown]
  - Incorrect dose administered [Unknown]
